FAERS Safety Report 19889356 (Version 1)
Quarter: 2021Q3

REPORT INFORMATION
  Report Type: Spontaneous
  Country: US (occurrence: US)
  Receive Date: 20210928
  Receipt Date: 20210928
  Transmission Date: 20211014
  Serious: Yes (Death)
  Sender: FDA-Public Use
  Company Number: None

PATIENT
  Age: 78 Year
  Sex: Male

DRUGS (1)
  1. BARICITINIB (BARICITINIB 1MG TAB) [Suspect]
     Active Substance: BARICITINIB
     Dates: start: 20210907

REACTIONS (3)
  - Cerebrovascular accident [None]
  - COVID-19 pneumonia [None]
  - Acute respiratory failure [None]

NARRATIVE: CASE EVENT DATE: 20210914
